FAERS Safety Report 5392309-2 (Version None)
Quarter: 2007Q3

REPORT INFORMATION
  Report Type: 
  Country: None (occurrence: None)
  Receive Date: 20070720
  Receipt Date: 20070709
  Transmission Date: 20080115
  Serious: Yes (Hospitalization)
  Sender: FDA-Public Use
  Company Number: DE-BRISTOL-MYERS SQUIBB COMPANY-13838487

PATIENT
  Age: 56 Year
  Sex: Female

DRUGS (8)
  1. ENTECAVIR [Suspect]
     Indication: HEPATITIS B
     Dosage: BATCH #'S 5J08015,5J09015  19-DEC-2006 TO 06-MAR-2006; 5J08015 04-MAR-2007 TO 06-MAR-2007
     Route: 048
     Dates: start: 20040317, end: 20070316
  2. LEVODOPA + BENSERAZIDE [Concomitant]
     Dates: start: 20050125
  3. ACETAMINOPHEN AND CODEINE PHOSPHATE [Concomitant]
     Dates: start: 20060103
  4. OMEPRAZOLE [Concomitant]
     Dates: start: 20020101
  5. IBUPROFEN [Concomitant]
     Dates: start: 20060815
  6. AMITRIPTYLINE HCL [Concomitant]
     Dates: start: 20070401
  7. ENAHEXAL [Concomitant]
     Dates: start: 20020904
  8. AMITRIPTYLINE HCL [Concomitant]
     Dates: start: 20070401

REACTIONS (1)
  - RESTLESS LEGS SYNDROME [None]
